FAERS Safety Report 19929013 (Version 1)
Quarter: 2021Q4

REPORT INFORMATION
  Report Type: Spontaneous
  Country: NO (occurrence: NO)
  Receive Date: 20211007
  Receipt Date: 20211007
  Transmission Date: 20220303
  Serious: Yes (Hospitalization)
  Sender: FDA-Public Use
  Company Number: NO-AMGEN-NORSP2021151327

PATIENT
  Age: 49 Year
  Sex: Female

DRUGS (1)
  1. NEULASTA [Suspect]
     Active Substance: PEGFILGRASTIM
     Indication: Neutropenia
     Dosage: 1 DOSE AFTER EACH CHEMOTHERAPY CYCLE
     Route: 058

REACTIONS (1)
  - Splenic haematoma [Recovered/Resolved with Sequelae]
